FAERS Safety Report 9037945 (Version 1)
Quarter: 2013Q1

REPORT INFORMATION
  Report Type: Spontaneous
  Country: US (occurrence: US)
  Receive Date: 20130129
  Receipt Date: 20130129
  Transmission Date: 20140127
  Serious: Yes (Other)
  Sender: FDA-Public Use
  Company Number: PHEH2013US001912

PATIENT
  Sex: Male

DRUGS (1)
  1. EXFORGE [Suspect]
     Indication: CARDIAC DISORDER
     Dosage: 1 DF (320 MG VALS+ 5 MG AMLO), QD
     Route: 048

REACTIONS (1)
  - Cardiac disorder [Unknown]
